FAERS Safety Report 8031438-1 (Version None)
Quarter: 2011Q4

REPORT INFORMATION
  Report Type: 
  Country: None (occurrence: None)
  Receive Date: 20111201
  Receipt Date: 20110803
  Transmission Date: 20120403
  Serious: Yes (Hospitalization)
  Sender: FDA-Public Use
  Company Number: 20110725CINRY2146

PATIENT
  Age: 29 Year
  Sex: Female
  Weight: 128.368 kg

DRUGS (12)
  1. CINRYZE [Suspect]
     Indication: PROPHYLAXIS
     Dosage: (1000 IU, MONDAY AND THURSDAY), INTRAVENOUS
     Route: 042
     Dates: start: 20110125, end: 20110705
  2. CINRYZE [Suspect]
     Indication: HEREDITARY ANGIOEDEMA
     Dosage: (1000 IU, MONDAY AND THURSDAY), INTRAVENOUS
     Route: 042
     Dates: start: 20110125, end: 20110705
  3. CINRYZE [Suspect]
     Indication: PROPHYLAXIS
     Dosage: (1000 IU, MONDAY AND THURSDAY), INTRAVENOUS
     Route: 042
     Dates: start: 20110729
  4. CINRYZE [Suspect]
     Indication: HEREDITARY ANGIOEDEMA
     Dosage: (1000 IU, MONDAY AND THURSDAY), INTRAVENOUS
     Route: 042
     Dates: start: 20110729
  5. PRISTIQ [Concomitant]
  6. PEPCID [Concomitant]
  7. AMICAR [Concomitant]
  8. METHADONE HCL (METHADONE HYDROCHLORIDE) [Concomitant]
  9. PRENATAL VITAMIN (TABLETS) [Concomitant]
  10. IMIPRAMINE HCL (IMIPRAMINE HYDROCHLORIDE) [Concomitant]
  11. LABETALOL HCL (LABETALOL HYDROCHLORIDE) [Concomitant]
  12. ONDANSETRON HCL (ONDANSETRON HYDROCHLORIDE) [Concomitant]

REACTIONS (3)
  - MATERNAL EXPOSURE DURING PREGNANCY [None]
  - DRUG DOSE OMISSION [None]
  - HEREDITARY ANGIOEDEMA [None]
